FAERS Safety Report 7869737-6 (Version None)
Quarter: 2011Q4

REPORT INFORMATION
  Report Type: 
  Country: None (occurrence: None)
  Receive Date: 20111027
  Receipt Date: 20111017
  Transmission Date: 20120403
  Serious: Yes (Other)
  Sender: FDA-Public Use
  Company Number: AUR-APL-2011-04848

PATIENT
  Age: 58 Year
  Sex: Female
  Weight: 79 kg

DRUGS (1)
  1. CITALOPRAM HYDROBROMIDE [Suspect]
     Indication: DEPRESSION
     Dosage: 20 MG (20 MG, 1 IN 1 D), ORAL
     Route: 048
     Dates: start: 20090101, end: 20110601

REACTIONS (12)
  - ANXIETY [None]
  - NAUSEA [None]
  - FOOD ALLERGY [None]
  - WEIGHT INCREASED [None]
  - MOOD ALTERED [None]
  - HEART RATE INCREASED [None]
  - WITHDRAWAL SYNDROME [None]
  - ACCIDENT [None]
  - ARTHRITIS [None]
  - VISION BLURRED [None]
  - LETHARGY [None]
  - HEADACHE [None]
